FAERS Safety Report 10612790 (Version 1)
Quarter: 2014Q4

REPORT INFORMATION
  Report Type: Spontaneous
  Country: GB (occurrence: GB)
  Receive Date: 20141127
  Receipt Date: 20141127
  Transmission Date: 20150529
  Serious: Yes (Other)
  Sender: FDA-Public Use
  Company Number: GB-009507513-1411GBR012380

PATIENT
  Age: 33 Year
  Sex: Female
  Weight: 53.97 kg

DRUGS (1)
  1. NEXPLANON [Suspect]
     Active Substance: ETONOGESTREL
     Indication: CONTRACEPTION
     Route: 058
     Dates: start: 20120804, end: 20140804

REACTIONS (9)
  - Libido decreased [Unknown]
  - Menorrhagia [Unknown]
  - Irritability [Unknown]
  - Depression [Unknown]
  - Affect lability [Unknown]
  - Dysmenorrhoea [Unknown]
  - Fatigue [Unknown]
  - Hot flush [Unknown]
  - Menstruation irregular [Unknown]

NARRATIVE: CASE EVENT DATE: 20120807
